FAERS Safety Report 9047978 (Version 1)
Quarter: 2013Q1

REPORT INFORMATION
  Report Type: Spontaneous
  Country: US (occurrence: US)
  Receive Date: 20130204
  Receipt Date: 20130204
  Transmission Date: 20140127
  Serious: No
  Sender: FDA-Public Use
  Company Number: US-AMGEN-USASP2013005704

PATIENT
  Age: 21 Year
  Sex: Female

DRUGS (2)
  1. ENBREL [Suspect]
     Indication: PSORIASIS
     Dosage: 50 MG, EVERY 5 DAYS
     Dates: start: 20110801, end: 20121224
  2. ENBREL [Suspect]

REACTIONS (2)
  - Drug effect incomplete [Not Recovered/Not Resolved]
  - Skin lesion [Not Recovered/Not Resolved]
